FAERS Safety Report 12404308 (Version 1)
Quarter: 2016Q2

REPORT INFORMATION
  Report Type: Spontaneous
  Country: US (occurrence: US)
  Receive Date: 20160525
  Receipt Date: 20160525
  Transmission Date: 20160815
  Serious: No
  Sender: FDA-Public Use
  Company Number: US-TARO-2015TAR00869

PATIENT
  Age: 13 Month
  Sex: Male
  Weight: 10.43 kg

DRUGS (2)
  1. FEVERALL CHILDRENS [Suspect]
     Active Substance: ACETAMINOPHEN
     Indication: PYREXIA
     Dosage: 1 DOSAGE UNITS, ONCE, 2-3 MONTHS AGO
     Route: 054
     Dates: start: 2015, end: 2015
  2. FEVERALL CHILDRENS [Suspect]
     Active Substance: ACETAMINOPHEN
     Dosage: 120 MG, ONCE
     Route: 054
     Dates: start: 20150913, end: 20150913

REACTIONS (2)
  - Drug ineffective [Not Recovered/Not Resolved]
  - Prescribed overdose [Unknown]

NARRATIVE: CASE EVENT DATE: 2015
